FAERS Safety Report 5344888-9 (Version None)
Quarter: 2007Q2

REPORT INFORMATION
  Report Type: 
  Country: None (occurrence: None)
  Receive Date: 20070416
  Receipt Date: 20070119
  Transmission Date: 20071010
  Serious: No
  Sender: FDA-Public Use
  Company Number: 2007SP000225

PATIENT
  Age: 44 Year
  Sex: Female
  Weight: 120.2032 kg

DRUGS (7)
  1. LUNESTA [Suspect]
     Indication: RESTLESS LEGS SYNDROME
     Dosage: 3MG ORAL
     Route: 048
     Dates: start: 20070108
  2. DURAGESIC-100 [Concomitant]
  3. REQUIP [Concomitant]
  4. CLONOPIN [Concomitant]
  5. PREVACID [Concomitant]
  6. PROVIGIL [Concomitant]
  7. OXYCODONE HCL [Concomitant]

REACTIONS (2)
  - DEHYDRATION [None]
  - DYSGEUSIA [None]
